FAERS Safety Report 7266731-3 (Version None)
Quarter: 2011Q1

REPORT INFORMATION
  Report Type: 
  Country: None (occurrence: None)
  Receive Date: 20110201
  Receipt Date: 20110118
  Transmission Date: 20110831
  Serious: No
  Sender: FDA-Public Use
  Company Number: US-BIOGENIDEC-2011BI001739

PATIENT
  Sex: Female

DRUGS (1)
  1. TYSABRI [Suspect]
     Indication: MULTIPLE SCLEROSIS
     Route: 042
     Dates: start: 20101124, end: 20101222

REACTIONS (4)
  - TREMOR [None]
  - DRUG SPECIFIC ANTIBODY PRESENT [None]
  - URTICARIA [None]
  - PRURITUS [None]
